FAERS Safety Report 7690629-X (Version None)
Quarter: 2011Q3

REPORT INFORMATION
  Report Type: 
  Country: None (occurrence: None)
  Receive Date: 20110812
  Receipt Date: 20110802
  Transmission Date: 20111222
  Serious: Yes (Other)
  Sender: FDA-Public Use
  Company Number: DSA_47331_2011

PATIENT
  Age: 87 Year
  Sex: Female
  Weight: 77.5197 kg

DRUGS (7)
  1. NIFEDIPINE [Suspect]
     Indication: ANGINA PECTORIS
     Dosage: (30 MG QD ORAL)
     Route: 048
  2. NIFEDIPINE [Suspect]
     Indication: CATHETERISATION CARDIAC
     Dosage: (30 MG QD ORAL)
     Route: 048
  3. NIFEDIPINE [Suspect]
     Indication: ATRIOVENTRICULAR BLOCK
     Dosage: (30 MG QD ORAL)
     Route: 048
  4. PROCARDIA [Suspect]
     Indication: ANGINA PECTORIS
     Dosage: (30 MG TID ORAL), (DF ORAL)
     Route: 048
     Dates: start: 19860101
  5. PROTONIX [Concomitant]
  6. ZANTAC [Concomitant]
  7. PEPCID [Concomitant]

REACTIONS (4)
  - PRODUCT SUBSTITUTION ISSUE [None]
  - DIZZINESS [None]
  - ANGINA PECTORIS [None]
  - MUSCLE SPASMS [None]
